FAERS Safety Report 24440774 (Version 1)
Quarter: 2024Q4

REPORT INFORMATION
  Report Type: Spontaneous
  Country: LB (occurrence: LB)
  Receive Date: 20241016
  Receipt Date: 20241016
  Transmission Date: 20250115
  Serious: Yes (Life-Threatening, Other)
  Sender: ALKEM
  Company Number: LB-ALKEM LABORATORIES LIMITED-LB-ALKEM-2024-21288

PATIENT
  Age: 24 Year
  Sex: Female

DRUGS (1)
  1. NIFEDIPINE [Suspect]
     Active Substance: NIFEDIPINE
     Indication: Tocolysis
     Dosage: 30 MILLIGRAM, QD (TOTAL OF 120 MG)
     Route: 048

REACTIONS (2)
  - Acute pulmonary oedema [Recovered/Resolved]
  - Exposure during pregnancy [Unknown]
